FAERS Safety Report 6479909-3 (Version None)
Quarter: 2009Q4

REPORT INFORMATION
  Report Type: 
  Country: None (occurrence: None)
  Receive Date: 20091208
  Receipt Date: 20091104
  Transmission Date: 20100525
  Serious: Yes (Other)
  Sender: FDA-Public Use
  Company Number: US-SANOFI-AVENTIS-2009SA001008

PATIENT
  Sex: Male

DRUGS (2)
  1. PLAVIX [Suspect]
     Route: 048
     Dates: start: 20071003
  2. OMEPRAZOLE [Concomitant]
     Route: 065
     Dates: end: 20090101

REACTIONS (5)
  - CORONARY ARTERY OCCLUSION [None]
  - DRUG INEFFECTIVE [None]
  - DRUG INTERACTION [None]
  - HEART RATE DECREASED [None]
  - IN-STENT CORONARY ARTERY RESTENOSIS [None]
